FAERS Safety Report 18210567 (Version 2)
Quarter: 2021Q1

REPORT INFORMATION
  Report Type: Spontaneous
  Country: DE (occurrence: DE)
  Receive Date: 20200829
  Receipt Date: 20210101
  Transmission Date: 20210419
  Serious: Yes (Other)
  Sender: FDA-Public Use
  Company Number: NVSC2020DE234582

PATIENT
  Age: 29 Year
  Sex: Female

DRUGS (3)
  1. CORTISONE [Concomitant]
     Active Substance: CORTISONE
     Indication: PRODUCT USED FOR UNKNOWN INDICATION
     Dosage: 15 MG
     Route: 065
  2. CIMZIA [Suspect]
     Active Substance: CERTOLIZUMAB PEGOL
     Indication: RHEUMATOID ARTHRITIS
     Dosage: 200 MG, BIW EV 2 WEEKS(QOW)
     Route: 065
     Dates: start: 2019, end: 2020
  3. LETROZOLE. [Suspect]
     Active Substance: LETROZOLE
     Indication: OLIGOMENORRHOEA
     Dosage: UNK
     Route: 065
     Dates: start: 202005

REACTIONS (3)
  - Therapeutic response decreased [Unknown]
  - Rheumatoid arthritis [Unknown]
  - Intentional product misuse [Unknown]

NARRATIVE: CASE EVENT DATE: 2020
